FAERS Safety Report 5163883-6 (Version None)
Quarter: 2006Q4

REPORT INFORMATION
  Report Type: 
  Country: None (occurrence: None)
  Receive Date: 20061204
  Receipt Date: 20010206
  Transmission Date: 20070319
  Serious: Yes (Hospitalization)
  Sender: FDA-Public Use
  Company Number: 10709350

PATIENT
  Age: 1 Day
  Sex: Male
  Weight: 3 kg

DRUGS (5)
  1. ZERIT [Suspect]
     Route: 064
     Dates: end: 20000707
  2. ZERIT [Suspect]
     Route: 048
     Dates: start: 20000707, end: 20000804
  3. EPIVIR [Suspect]
     Route: 064
     Dates: end: 20000707
  4. RETROVIR [Suspect]
     Dosage: GIVEN DURING DELIVERY
     Route: 064
     Dates: start: 20000707, end: 20000707
  5. IRON [Concomitant]
     Route: 064
     Dates: end: 20000707

REACTIONS (4)
  - ANAEMIA MACROCYTIC [None]
  - HYPERTRIGLYCERIDAEMIA [None]
  - NEUTROPENIA [None]
  - SICKLE CELL ANAEMIA [None]
